FAERS Safety Report 9136521 (Version 1)
Quarter: 2013Q1

REPORT INFORMATION
  Report Type: Spontaneous
  Country: US (occurrence: US)
  Receive Date: 20130219
  Receipt Date: 20130219
  Transmission Date: 20140127
  Serious: No
  Sender: FDA-Public Use
  Company Number: US-BRISTOL-MYERS SQUIBB COMPANY-16846529

PATIENT
  Age: 54 Year
  Sex: Female
  Weight: 68.03 kg

DRUGS (4)
  1. ORENCIA [Suspect]
     Dosage: STRENGTH-125MG/ML
     Route: 058
     Dates: start: 20120701
  2. CITRACAL + D [Concomitant]
  3. CYCLOBENZAPRINE [Concomitant]
  4. TRAMADOL [Concomitant]

REACTIONS (1)
  - Rheumatoid arthritis [Not Recovered/Not Resolved]
